FAERS Safety Report 22299889 (Version 1)
Quarter: 2023Q2

REPORT INFORMATION
  Report Type: Spontaneous
  Country: US (occurrence: None)
  Receive Date: 20230509
  Receipt Date: 20230509
  Transmission Date: 20230722
  Serious: No
  Sender: FDA-Public Use
  Company Number: None

PATIENT

DRUGS (3)
  1. ROCURONIUM BROMIDE [Suspect]
     Active Substance: ROCURONIUM BROMIDE
     Route: 042
  2. SUCCINYLCHOLINE CHLORIDE [Suspect]
     Active Substance: SUCCINYLCHOLINE CHLORIDE
     Route: 042
  3. VECURONIUM BROMIDE [Suspect]
     Active Substance: VECURONIUM BROMIDE
     Route: 042

REACTIONS (3)
  - Product packaging confusion [None]
  - Circumstance or information capable of leading to device use error [None]
  - Product storage error [None]
